FAERS Safety Report 5871701-3 (Version None)
Quarter: 2008Q3

REPORT INFORMATION
  Report Type: 
  Country: None (occurrence: None)
  Receive Date: 20080902
  Receipt Date: 20060120
  Transmission Date: 20090109
  Serious: Yes (Death)
  Sender: FDA-Public Use
  Company Number: 2008AL009344

PATIENT
  Age: 25 Year
  Sex: Male

DRUGS (4)
  1. CITALOPRAM HYDROBROMIDE [Suspect]
  2. FEVERALL [Suspect]
  3. CYCLIZINE [Concomitant]
  4. CODEINE SUL TAB [Concomitant]

REACTIONS (6)
  - ASPIRATION [None]
  - DRUG TOXICITY [None]
  - MULTIPLE DRUG OVERDOSE INTENTIONAL [None]
  - PULMONARY CONGESTION [None]
  - PULMONARY OEDEMA [None]
  - URINE ALCOHOL TEST POSITIVE [None]
